FAERS Safety Report 4962756-9 (Version None)
Quarter: 2006Q2

REPORT INFORMATION
  Report Type: 
  Country: None (occurrence: None)
  Receive Date: 20060404
  Receipt Date: 20051026
  Transmission Date: 20061013
  Serious: Yes (Hospitalization)
  Sender: FDA-Public Use
  Company Number: US-MERCK-0510USA09481

PATIENT
  Sex: Female
  Weight: 125 kg

DRUGS (2)
  1. VIOXX [Suspect]
     Indication: ROAD TRAFFIC ACCIDENT
     Route: 048
     Dates: start: 20000901, end: 20001201
  2. VIOXX [Suspect]
     Indication: BACK INJURY
     Route: 048
     Dates: start: 20000901, end: 20001201

REACTIONS (3)
  - ANXIETY [None]
  - DEPRESSION [None]
  - PULMONARY EMBOLISM [None]
